FAERS Safety Report 11792591 (Version 5)
Quarter: 2019Q1

REPORT INFORMATION
  Report Type: Spontaneous
  Country: SE (occurrence: SE)
  Receive Date: 20151202
  Receipt Date: 20190218
  Transmission Date: 20190417
  Serious: Yes (Death, Other)
  Sender: FDA-Public Use
  Company Number: SE-JNJFOC-20151126188

PATIENT
  Sex: Male
  Weight: 102 kg

DRUGS (4)
  1. IPREN [Suspect]
     Active Substance: IBUPROFEN
     Route: 065
  2. PEPCID [Suspect]
     Active Substance: FAMOTIDINE
     Route: 048
  3. IPREN [Suspect]
     Active Substance: IBUPROFEN
     Indication: PAIN
     Route: 065
  4. PEPCID [Suspect]
     Active Substance: FAMOTIDINE
     Indication: PRODUCT USED FOR UNKNOWN INDICATION
     Route: 048

REACTIONS (2)
  - Haematemesis [Fatal]
  - Gastric haemorrhage [Fatal]
